FAERS Safety Report 26016246 (Version 1)
Quarter: 2025Q4

REPORT INFORMATION
  Report Type: Spontaneous
  Country: EU (occurrence: EU)
  Receive Date: 20251110
  Receipt Date: 20251110
  Transmission Date: 20260118
  Serious: Yes (Life-Threatening, Hospitalization)
  Sender: DR REDDYS
  Company Number: None

PATIENT
  Age: 54 Year
  Sex: Female
  Weight: 65 kg

DRUGS (9)
  1. CAPECITABINE [Suspect]
     Active Substance: CAPECITABINE
     Indication: Breast cancer
     Route: 048
  2. CAPECITABINE [Suspect]
     Active Substance: CAPECITABINE
     Dosage: GIVEN 1-14 DAYS FOLLOWED BY 1 WEEK REST.
     Route: 048
     Dates: start: 20040617, end: 20040622
  3. CAPECITABINE [Suspect]
     Active Substance: CAPECITABINE
     Dosage: GIVEN 1-14 DAYS FOLLOWED BY 1 WEEK REST.
     Route: 048
     Dates: start: 20040708, end: 20040708
  4. CAPECITABINE [Suspect]
     Active Substance: CAPECITABINE
     Dosage: GIVEN 1-14 DAYS FOLLOWED BY 1 WEEK REST.
     Route: 048
     Dates: start: 20040415
  5. TAXOL [Suspect]
     Active Substance: PACLITAXEL
     Indication: Breast cancer female
     Dosage: INTERVAL THERAPY 289 MG
     Route: 042
     Dates: end: 20040708
  6. PACLITAXEL [Suspect]
     Active Substance: PACLITAXEL
     Indication: Breast cancer
     Dosage: GIVEN ON DAY 1.
     Route: 042
     Dates: start: 20040415
  7. PACLITAXEL [Suspect]
     Active Substance: PACLITAXEL
     Dosage: GIVEN ON DAY 1.
     Route: 042
     Dates: start: 20040617, end: 20040617
  8. PACLITAXEL [Suspect]
     Active Substance: PACLITAXEL
     Dosage: GIVEN ON DAY 1.
     Route: 042
     Dates: start: 20040708, end: 20040708
  9. PACLITAXEL [Suspect]
     Active Substance: PACLITAXEL
     Dosage: GIVEN ON DAY 1.
     Route: 042

REACTIONS (10)
  - General physical health deterioration [Recovered/Resolved]
  - Nausea [Recovering/Resolving]
  - Diarrhoea [Recovering/Resolving]
  - Vomiting [Recovering/Resolving]
  - Malaise [Recovered/Resolved]
  - Intestinal perforation [Recovered/Resolved]
  - Nausea [Recovered/Resolved]
  - Intestinal perforation [Recovering/Resolving]
  - Small intestinal perforation [Recovered/Resolved]
  - Peritonitis [Unknown]

NARRATIVE: CASE EVENT DATE: 20040622
